FAERS Safety Report 10532040 (Version 1)
Quarter: 2014Q4

REPORT INFORMATION
  Report Type: Spontaneous
  Country: US (occurrence: US)
  Receive Date: 20141021
  Receipt Date: 20141021
  Transmission Date: 20150529
  Serious: Yes (Other)
  Sender: FDA-Public Use
  Company Number: US-NAPPMUNDI-USA-2014-0114130

PATIENT
  Sex: Female

DRUGS (2)
  1. OXYCONTIN [Suspect]
     Active Substance: OXYCODONE HYDROCHLORIDE
     Indication: DRUG DEPENDENCE
  2. OXYCONTIN [Suspect]
     Active Substance: OXYCODONE HYDROCHLORIDE
     Indication: PAIN
     Dosage: 200 MG, DAILY
     Route: 048

REACTIONS (5)
  - Sedation [Unknown]
  - Activities of daily living impaired [Unknown]
  - Drug tolerance [Unknown]
  - Confusional state [Unknown]
  - Drug dependence [Unknown]
